FAERS Safety Report 25490166 (Version 1)
Quarter: 2025Q2

REPORT INFORMATION
  Report Type: Spontaneous
  Country: US (occurrence: US)
  Receive Date: 20250628
  Receipt Date: 20250628
  Transmission Date: 20250717
  Serious: No
  Sender: SANOFI AVENTIS
  Company Number: US-SANOFI-02570629

PATIENT
  Age: 66 Year
  Sex: Male

DRUGS (3)
  1. TOUJEO MAX [Suspect]
     Active Substance: INSULIN GLARGINE
     Indication: Type 2 diabetes mellitus
     Dosage: 54 IU, QD
  2. TOUJEO MAX [Suspect]
     Active Substance: INSULIN GLARGINE
     Dosage: 56 IU, QD
  3. HUMALOG [Concomitant]
     Active Substance: INSULIN LISPRO
     Dosage: UNK UNK, QD

REACTIONS (4)
  - Blood glucose increased [Unknown]
  - Drug ineffective [Unknown]
  - Blood glucose decreased [Unknown]
  - Blood glucose fluctuation [Unknown]

NARRATIVE: CASE EVENT DATE: 20250601
